FAERS Safety Report 6945245-1 (Version None)
Quarter: 2010Q3

REPORT INFORMATION
  Report Type: 
  Country: None (occurrence: None)
  Receive Date: 20100827
  Receipt Date: 20100617
  Transmission Date: 20110219
  Serious: No
  Sender: FDA-Public Use
  Company Number: US-KINGPHARMUSA00001-K201000768

PATIENT
  Sex: Male
  Weight: 83.9 kg

DRUGS (10)
  1. FLECTOR [Suspect]
     Indication: PAIN
     Dosage: 1 PATCH, Q12HOURS
     Route: 061
     Dates: start: 20100308
  2. GABAPENTIN [Concomitant]
  3. FLEXERIL [Concomitant]
  4. MORPHINE [Concomitant]
  5. OXYCODONE HCL [Concomitant]
     Dosage: 15 MG, UNK
  6. IBUPROFEN [Concomitant]
  7. TRAMADOL HCL [Concomitant]
  8. TRAZODONE HCL [Concomitant]
  9. BENZODIAZEPINE DERIVATIVES [Concomitant]
  10. MEDROL [Concomitant]
     Dosage: UNK
     Dates: start: 20100408

REACTIONS (1)
  - BLOOD URINE PRESENT [None]
